FAERS Safety Report 25166417 (Version 1)
Quarter: 2025Q2

REPORT INFORMATION
  Report Type: Spontaneous
  Country: US (occurrence: US)
  Receive Date: 20250407
  Receipt Date: 20250407
  Transmission Date: 20250717
  Serious: No
  Sender: ELI LILLY AND CO
  Company Number: US-ELI_LILLY_AND_COMPANY-US202504000385

PATIENT
  Age: 53 Year
  Sex: Female
  Weight: 87.075 kg

DRUGS (1)
  1. LYUMJEV KWIKPEN [Suspect]
     Active Substance: INSULIN LISPRO
     Indication: Product used for unknown indication
     Route: 065

REACTIONS (3)
  - Contusion [Unknown]
  - Haemorrhage [Unknown]
  - Skin reaction [Unknown]

NARRATIVE: CASE EVENT DATE: 20250315
